FAERS Safety Report 13180528 (Version 1)
Quarter: 2017Q1

REPORT INFORMATION
  Report Type: Spontaneous
  Country: TR (occurrence: TR)
  Receive Date: 20170202
  Receipt Date: 20170202
  Transmission Date: 20170428
  Serious: Yes (Other)
  Sender: FDA-Public Use
  Company Number: TR-GLAXOSMITHKLINE-TR2017GSK014862

PATIENT
  Sex: Female

DRUGS (1)
  1. ACYCLOVIR. [Suspect]
     Active Substance: ACYCLOVIR
     Indication: BREAST CANCER METASTATIC
     Route: 042

REACTIONS (3)
  - Dermatitis bullous [Unknown]
  - Erythema [Unknown]
  - Phlebitis [Unknown]
